FAERS Safety Report 8529725-3 (Version None)
Quarter: 2012Q3

REPORT INFORMATION
  Report Type: 
  Country: None (occurrence: None)
  Receive Date: 20120710
  Receipt Date: 20120622
  Transmission Date: 20120928
  Serious: Yes (Life-Threatening)
  Sender: FDA-Public Use
  Company Number: 200370102-ICG-2012-001

PATIENT
  Age: 22 Year
  Sex: Male

DRUGS (17)
  1. HEPARIN-UNITS X 1000 [Concomitant]
  2. VASOPRESSIN [Concomitant]
  3. FENTANYL [Concomitant]
  4. EPINEPHRINE [Concomitant]
  5. SUFENTANIL CITRATE [Concomitant]
  6. ROCURONIUM BROMIDE [Concomitant]
  7. IC-GREEN (25 MG), AKORN [Suspect]
     Indication: IMAGING PROCEDURE
     Dosage: 5 MG BOLUS, IV
     Route: 042
     Dates: start: 20120521, end: 20120521
  8. PROPOFOL [Concomitant]
  9. LIDOCAINE [Concomitant]
  10. SULFENTANIL INF. [Concomitant]
  11. PROPOFOL INF. [Concomitant]
  12. CALCIUM CHLORIDE [Concomitant]
  13. MIDAZOLAM [Concomitant]
  14. VANCOMYCIN [Concomitant]
  15. DEXTRAN INJ [Concomitant]
  16. INDACYANINE GREEN [Concomitant]
  17. ATROPINE [Concomitant]

REACTIONS (1)
  - PULSELESS ELECTRICAL ACTIVITY [None]
